FAERS Safety Report 9489940 (Version 1)
Quarter: 2013Q3

REPORT INFORMATION
  Report Type: Spontaneous
  Country: TW (occurrence: TW)
  Receive Date: 20130829
  Receipt Date: 20130829
  Transmission Date: 20140515
  Serious: Yes (Hospitalization)
  Sender: FDA-Public Use
  Company Number: PHHY2013TW091319

PATIENT
  Age: 47 Year
  Sex: Female

DRUGS (4)
  1. QUETIAPINE [Suspect]
     Indication: SCHIZOPHRENIA
     Dosage: 400 MG, PER DAY
  2. QUETIAPINE [Suspect]
     Dosage: 300 MG, PER DAY
  3. QUETIAPINE [Suspect]
     Dosage: 300 MG, PER DAY
  4. QUETIAPINE [Suspect]
     Dosage: 400 MG,  PER DAY

REACTIONS (4)
  - Hepatocellular injury [Unknown]
  - Hepatic enzyme increased [Recovering/Resolving]
  - Liver function test abnormal [Recovering/Resolving]
  - Oedema peripheral [Recovered/Resolved]
